FAERS Safety Report 22343637 (Version 1)
Quarter: 2023Q2

REPORT INFORMATION
  Report Type: Spontaneous
  Country: US (occurrence: US)
  Receive Date: 20230519
  Receipt Date: 20230519
  Transmission Date: 20230721
  Serious: Yes (Hospitalization, Other)
  Sender: FDA-Public Use
  Company Number: US-ABP-000020

PATIENT
  Age: 62 Year
  Sex: Male

DRUGS (2)
  1. ATOVAQUONE [Suspect]
     Active Substance: ATOVAQUONE
     Indication: Prophylaxis
     Route: 065
  2. SULFAMETHOXAZOLE\TRIMETHOPRIM [Suspect]
     Active Substance: SULFAMETHOXAZOLE\TRIMETHOPRIM
     Indication: Product used for unknown indication
     Route: 065

REACTIONS (11)
  - Disseminated toxoplasmosis [Unknown]
  - Dyspnoea [Recovered/Resolved]
  - Pyrexia [Unknown]
  - Headache [Unknown]
  - Pleural effusion [Unknown]
  - Pulmonary mass [Unknown]
  - Pneumonia [Unknown]
  - Encephalopathy [Unknown]
  - Shock [Unknown]
  - Renal failure [Unknown]
  - Nocardiosis [Unknown]
